FAERS Safety Report 14262262 (Version 1)
Quarter: 2017Q4

REPORT INFORMATION
  Report Type: Spontaneous
  Country: DE (occurrence: DE)
  Receive Date: 20171208
  Receipt Date: 20171208
  Transmission Date: 20180321
  Serious: Yes (Other)
  Sender: FDA-Public Use
  Company Number: DE-ACCORD-061735

PATIENT
  Age: 78 Year
  Sex: Male

DRUGS (5)
  1. QUETIAPINE. [Suspect]
     Active Substance: QUETIAPINE
     Indication: DEMENTIA WITH LEWY BODIES
     Dosage: FINAL DOSE OF QUETIAPINE WAS 100 MG/D
  2. DRONABINOL. [Concomitant]
     Active Substance: DRONABINOL
     Indication: DEMENTIA WITH LEWY BODIES
     Dosage: 2.5 UP TO 15 MG/D^2
  3. FLUPENTIXOL/FLUPENTIXOL DECANOATE/FLUPENTIXOL DIHYDROCHLORIDE [Concomitant]
     Indication: DEMENTIA WITH LEWY BODIES
     Route: 048
  4. PAROXETINE. [Concomitant]
     Active Substance: PAROXETINE
  5. DEXTROMETHORPHAN [Concomitant]
     Active Substance: DEXTROMETHORPHAN
     Indication: DEMENTIA WITH LEWY BODIES
     Dosage: INCREASED TO 40 MG/D DIVIDED INTO 2 DOSAGES

REACTIONS (5)
  - Withdrawal syndrome [Recovering/Resolving]
  - Sleep disorder [Recovering/Resolving]
  - Off label use [Unknown]
  - Hangover [Recovering/Resolving]
  - Aggression [Recovering/Resolving]
